FAERS Safety Report 4884478-5 (Version None)
Quarter: 2006Q1

REPORT INFORMATION
  Report Type: 
  Country: None (occurrence: None)
  Receive Date: 20060117
  Receipt Date: 20060102
  Transmission Date: 20060701
  Serious: Yes (Hospitalization)
  Sender: FDA-Public Use
  Company Number: 220358

PATIENT
  Age: 57 Year
  Sex: Male

DRUGS (6)
  1. AVASTIN [Suspect]
     Indication: COLORECTAL CANCER METASTATIC
     Dosage: 5 MG/KG, Q2W, INTRAVENOUS
     Route: 042
     Dates: start: 20050321, end: 20050531
  2. FLUOROURACIL [Concomitant]
  3. LEUCOVORIN CALCIUM [Concomitant]
  4. PREDNISONE [Concomitant]
  5. ZOFRAN [Concomitant]
  6. PEPTO-BISMOL (BISMUTH SUBSALICYLATE) [Concomitant]

REACTIONS (7)
  - ARTERIAL RUPTURE [None]
  - DIARRHOEA [None]
  - INFECTION [None]
  - INTESTINAL OBSTRUCTION [None]
  - NAUSEA [None]
  - PERITONITIS [None]
  - VOMITING [None]
